FAERS Safety Report 6314078-1 (Version None)
Quarter: 2009Q3

REPORT INFORMATION
  Report Type: 
  Country: None (occurrence: None)
  Receive Date: 20090814
  Receipt Date: 20090729
  Transmission Date: 20100115
  Serious: Yes (Death, Life-Threatening, Hospitalization)
  Sender: FDA-Public Use
  Company Number: F03200900088

PATIENT
  Age: 70 Year
  Sex: Male

DRUGS (9)
  1. OFORTA - (FLUDARABINE PHOSPHATE) - TABLET [Suspect]
     Indication: PERIPHERAL T-CELL LYMPHOMA UNSPECIFIED
     Dosage: 50 MG QD ORAL
     Route: 048
     Dates: start: 20080729
  2. CYCLOPHOSPHAMIDE [Suspect]
     Indication: PERIPHERAL T-CELL LYMPHOMA UNSPECIFIED
     Dosage: 200 MG QD ORAL
     Route: 048
     Dates: start: 20080729
  3. ITRACONAZOLE [Suspect]
     Indication: ANTIFUNGAL PROPHYLAXIS
     Dosage: 200 MG QD INTRAVENOUS NOS
     Route: 042
     Dates: start: 20080802
  4. NEUTROGIN - (LENOGRASTIM) [Suspect]
     Indication: NEUTROPHIL COUNT DECREASED
     Dosage: INTRAVENOUS NOS
     Route: 042
     Dates: start: 20080802
  5. MAXIPIME [Suspect]
     Indication: PROPHYLAXIS
     Dosage: INTRAVENOUS NOS
     Route: 042
     Dates: start: 20080802
  6. MEROPENEM [Suspect]
     Indication: PROPHYLAXIS
     Dosage: INTRAVENOUS NOS
     Route: 042
     Dates: start: 20080820
  7. VORICONAZOLE [Suspect]
     Indication: ANTIFUNGAL PROPHYLAXIS
     Dosage: INTRAVENOUS NOS
     Route: 042
     Dates: start: 20080917
  8. CARBENIN [Suspect]
     Indication: PNEUMONIA
     Dosage: INTRAVENOUS NOS
     Route: 042
     Dates: start: 20080917
  9. CIPROFLOXACIN HCL [Suspect]
     Indication: PNEUMONIA
     Dosage: INTRAVENOUS DRIP
     Route: 041
     Dates: start: 20080921

REACTIONS (9)
  - ANAEMIA [None]
  - BLOOD ALKALINE PHOSPHATASE INCREASED [None]
  - CYSTITIS HAEMORRHAGIC [None]
  - GAMMA-GLUTAMYLTRANSFERASE INCREASED [None]
  - HYPOALBUMINAEMIA [None]
  - LYMPHOCYTE COUNT DECREASED [None]
  - PNEUMONIA [None]
  - RENAL DISORDER [None]
  - RENAL FAILURE [None]
